FAERS Safety Report 7084205-X (Version None)
Quarter: 2010Q4

REPORT INFORMATION
  Report Type: 
  Country: None (occurrence: None)
  Receive Date: 20101104
  Receipt Date: 20100125
  Transmission Date: 20110411
  Serious: Yes (Other)
  Sender: FDA-Public Use
  Company Number: US-AMGEN-USASP2010003035

PATIENT

DRUGS (4)
  1. NPLATE [Suspect]
     Indication: IDIOPATHIC THROMBOCYTOPENIC PURPURA
     Dosage: 450 A?G, QWK
     Dates: start: 20090205
  2. CORTICOSTEROIDS [Concomitant]
     Dosage: UNK
     Dates: start: 19910718
  3. IMMU-G [Concomitant]
     Dosage: UNK
     Dates: start: 19990405
  4. PREDNISONE [Concomitant]
     Dosage: 2 MG, QD

REACTIONS (2)
  - INCISION SITE COMPLICATION [None]
  - PLATELET COUNT DECREASED [None]
